FAERS Safety Report 5086922-X (Version None)
Quarter: 2006Q3

REPORT INFORMATION
  Report Type: 
  Country: None (occurrence: None)
  Receive Date: 20060818
  Receipt Date: 20060811
  Transmission Date: 20061208
  Serious: Yes (Other)
  Sender: FDA-Public Use
  Company Number: 2006083962

PATIENT
  Age: 74 Year
  Sex: Female
  Weight: 86.1834 kg

DRUGS (7)
  1. LIPITOR [Suspect]
     Indication: BLOOD CHOLESTEROL INCREASED
     Dosage: 10 MG (10 MG, 1 IN 1 D)
     Dates: start: 20000101
  2. DITROPAN [Concomitant]
  3. VITAMINS (VITAMINS) [Concomitant]
  4. PREVAVCID (LANSOPRAZOLE) [Concomitant]
  5. ASPIRIN [Concomitant]
  6. ZOLOFT [Concomitant]
  7. CALCIUM             (CALCIUM) [Concomitant]

REACTIONS (9)
  - BLOOD CHOLESTEROL INCREASED [None]
  - BLOOD UREA INCREASED [None]
  - DRUG EFFECT DECREASED [None]
  - GALLBLADDER OPERATION [None]
  - HAEMOGLOBIN DECREASED [None]
  - KNEE OPERATION [None]
  - LOW DENSITY LIPOPROTEIN INCREASED [None]
  - RECTAL FISTULA REPAIR [None]
  - URINARY TRACT INFECTION [None]
